FAERS Safety Report 4672491-2 (Version None)
Quarter: 2005Q2

REPORT INFORMATION
  Report Type: 
  Country: None (occurrence: None)
  Receive Date: 20050524
  Receipt Date: 20050516
  Transmission Date: 20051028
  Serious: Yes (Other)
  Sender: FDA-Public Use
  Company Number: 200514216US

PATIENT
  Sex: Male

DRUGS (7)
  1. LANTUS [Suspect]
     Indication: DIABETES MELLITUS NON-INSULIN-DEPENDENT
     Dosage: DOSE UNIT: UNITS
     Dates: start: 20050201
  2. OPTICLIK (INSULIN INJECTION PEN) [Suspect]
     Dosage: DOSE: UNK
     Dates: start: 20050223
  3. ACTOS [Concomitant]
     Dosage: DOSE: UNK
  4. PRANDIN [Concomitant]
     Dosage: DOSE: UNK
  5. NEURONTIN [Concomitant]
     Dosage: DOSE: UNK
  6. NOVOLOG [Concomitant]
     Dosage: DOSE: UNK
  7. ANTIBIOTICS [Concomitant]
     Dosage: DOSE: UNK

REACTIONS (5)
  - BLOOD GLUCOSE INCREASED [None]
  - BRONCHITIS [None]
  - INJECTION SITE ABSCESS [None]
  - INJECTION SITE HAEMORRHAGE [None]
  - MEDICAL DEVICE COMPLICATION [None]
